FAERS Safety Report 4961226-1 (Version None)
Quarter: 2006Q1

REPORT INFORMATION
  Report Type: 
  Country: None (occurrence: None)
  Receive Date: 20060201
  Receipt Date: 20051019
  Transmission Date: 20060701
  Serious: No
  Sender: FDA-Public Use
  Company Number: 2005PV003669

PATIENT
  Age: 63 Year
  Sex: Female
  Weight: 111.1313 kg

DRUGS (4)
  1. BYETTA [Suspect]
     Indication: DIABETES MELLITUS NON-INSULIN-DEPENDENT
     Dosage: 5 MCG;QD;SC
     Route: 058
     Dates: start: 20051014
  2. HUMULIN N [Concomitant]
  3. HUMULIN 70/30 [Concomitant]
  4. ALEVE [Concomitant]

REACTIONS (8)
  - BLOOD GLUCOSE DECREASED [None]
  - DYSGEUSIA [None]
  - FEELING ABNORMAL [None]
  - INFREQUENT BOWEL MOVEMENTS [None]
  - MALAISE [None]
  - MYALGIA [None]
  - NAUSEA [None]
  - WEIGHT DECREASED [None]
